FAERS Safety Report 14580421 (Version 1)
Quarter: 2018Q1

REPORT INFORMATION
  Report Type: Spontaneous
  Country: US (occurrence: US)
  Receive Date: 20180228
  Receipt Date: 20180228
  Transmission Date: 20180509
  Serious: Yes (Disabling, Congenital Anomaly)
  Sender: FDA-Public Use
  Company Number: US-ABBVIE-18P-163-2263508-00

PATIENT

DRUGS (1)
  1. DEPAKOTE [Suspect]
     Active Substance: DIVALPROEX SODIUM
     Indication: MATERNAL EXPOSURE TIMING UNSPECIFIED
     Route: 064

REACTIONS (18)
  - Incontinence [Unknown]
  - Hypotonia [Unknown]
  - Coordination abnormal [Unknown]
  - Dacryostenosis congenital [Unknown]
  - Dysmorphism [Unknown]
  - Cardiac murmur [Unknown]
  - Hernia [Unknown]
  - Encephalopathy [Unknown]
  - Apnoea [Unknown]
  - Foetal exposure during pregnancy [Unknown]
  - Apraxia [Unknown]
  - Patent ductus arteriosus [Unknown]
  - Strabismus [Unknown]
  - Foetal anticonvulsant syndrome [Unknown]
  - Polydactyly [Unknown]
  - Hypospadias [Unknown]
  - Febrile convulsion [Unknown]
  - Autism spectrum disorder [Unknown]
